FAERS Safety Report 7560730-X (Version None)
Quarter: 2011Q2

REPORT INFORMATION
  Report Type: 
  Country: None (occurrence: None)
  Receive Date: 20110621
  Receipt Date: 20110613
  Transmission Date: 20111010
  Serious: Yes (Death)
  Sender: FDA-Public Use
  Company Number: JP-GENZYME-THYM-1002530

PATIENT
  Sex: Female
  Weight: 8 kg

DRUGS (15)
  1. THYMOGLOBULIN [Suspect]
     Indication: BONE MARROW CONDITIONING REGIMEN
     Dosage: 10 MG, QD
     Route: 042
     Dates: start: 20100902, end: 20100905
  2. METHYLPREDNISOLONE SODIUM SUCCINATE [Concomitant]
     Indication: PREMEDICATION
     Dosage: UNK
     Dates: start: 20100902, end: 20100907
  3. AMIKACIN SULFATE [Concomitant]
     Indication: INFECTION PROPHYLAXIS
     Dosage: UNK
     Dates: start: 20100825, end: 20100915
  4. VORICONAZOLE [Concomitant]
     Indication: INFECTION PROPHYLAXIS
     Dosage: UNK
     Dates: start: 20100824, end: 20100915
  5. SULFAMETHOPRIM [Concomitant]
     Indication: INFECTION PROPHYLAXIS
     Dosage: UNK
     Dates: start: 20100825, end: 20100830
  6. PLATELETS, CONCENTRATED [Concomitant]
     Indication: PROPHYLAXIS
     Dosage: UNK
     Dates: start: 20100824, end: 20100918
  7. METHOTREXATE [Concomitant]
     Indication: PROPHYLAXIS
     Dosage: UNK
     Dates: start: 20100908, end: 20100913
  8. FLUDARA [Suspect]
     Indication: BONE MARROW CONDITIONING REGIMEN
     Dosage: UNK
     Route: 065
     Dates: start: 20100831, end: 20100905
  9. LENOGRASTIM [Concomitant]
     Indication: PREMEDICATION
     Dosage: UNK
     Dates: start: 20100912, end: 20100914
  10. MEROPENEM [Concomitant]
     Indication: INFECTION PROPHYLAXIS
     Dosage: UNK
     Dates: start: 20100825, end: 20100915
  11. TOTAL BODY RADIATION THERAPY [Concomitant]
     Indication: BONE MARROW CONDITIONING REGIMEN
     Dosage: UNK
     Dates: start: 20100830
  12. MESNA [Concomitant]
     Indication: PROPHYLAXIS
     Dosage: UNK
     Dates: start: 20100902, end: 20100905
  13. TACROLIMUS [Concomitant]
     Indication: CONGENITAL APLASTIC ANAEMIA
     Dosage: UNK
     Dates: start: 20100706, end: 20100914
  14. RED BLOOD CELLS, CONCENTRATED [Concomitant]
     Indication: PROPHYLAXIS
     Dosage: UNK
     Dates: start: 20100901, end: 20100917
  15. ACYCLOVIR [Concomitant]
     Indication: INFECTION PROPHYLAXIS
     Dosage: UNK
     Dates: start: 20100902, end: 20100915

REACTIONS (2)
  - PYREXIA [None]
  - BRONCHOPULMONARY ASPERGILLOSIS [None]
